FAERS Safety Report 9191996 (Version 1)
Quarter: 2013Q1

REPORT INFORMATION
  Report Type: Spontaneous
  Country: US (occurrence: US)
  Receive Date: 20130327
  Receipt Date: 20130327
  Transmission Date: 20140127
  Serious: No
  Sender: FDA-Public Use
  Company Number: US-009507513-1303USA012524

PATIENT
  Age: 40 Year
  Sex: Female

DRUGS (1)
  1. SAPHRIS [Suspect]
     Indication: BIPOLAR I DISORDER
     Dosage: 5 MG, QD
     Route: 048
     Dates: start: 201302, end: 2013

REACTIONS (1)
  - Lacrimation increased [Recovered/Resolved]
